FAERS Safety Report 25328455 (Version 1)
Quarter: 2025Q2

REPORT INFORMATION
  Report Type: Spontaneous
  Country: GB (occurrence: GB)
  Receive Date: 20250518
  Receipt Date: 20250518
  Transmission Date: 20250716
  Serious: Yes (Disabling, Other)
  Sender: TEVA
  Company Number: None

PATIENT
  Age: 41 Year
  Sex: Female
  Weight: 89 kg

DRUGS (3)
  1. FLUOXETINE [Suspect]
     Active Substance: FLUOXETINE HYDROCHLORIDE
     Indication: Depression
     Route: 065
     Dates: start: 20250418
  2. CLONAZEPAM [Concomitant]
     Active Substance: CLONAZEPAM
     Indication: Panic attack
     Dates: start: 20240401
  3. LORAZEPAM [Concomitant]
     Active Substance: LORAZEPAM
     Indication: Adverse drug reaction
     Dates: start: 20250501

REACTIONS (8)
  - Nervousness [Not Recovered/Not Resolved]
  - Impulsive behaviour [Unknown]
  - Crying [Recovered/Resolved with Sequelae]
  - Suicidal ideation [Unknown]
  - Aggression [Not Recovered/Not Resolved]
  - Self-destructive behaviour [Unknown]
  - Suicidal ideation [Recovering/Resolving]
  - Disinhibition [Not Recovered/Not Resolved]

NARRATIVE: CASE EVENT DATE: 20250418
